FAERS Safety Report 4992725-4 (Version None)
Quarter: 2006Q1

REPORT INFORMATION
  Report Type: 
  Country: None (occurrence: None)
  Receive Date: 20060315
  Receipt Date: 20050714
  Transmission Date: 20060701
  Serious: Yes (Other)
  Sender: FDA-Public Use
  Company Number: USA0506100835

PATIENT
  Age: 49 Year
  Sex: Female
  Weight: 87.2 kg

DRUGS (12)
  1. GEMZAR [Suspect]
     Indication: GALLBLADDER CANCER
     Dosage: 1000 MG/M2
     Dates: start: 20041110, end: 20050706
  2. COUMADIN [Concomitant]
  3. ATENOLOL [Concomitant]
  4. HYDROCHLOROTHIAZIDE [Concomitant]
  5. GRAPE SEED EXTRACT (GRAPE SEED EXTRACT) [Concomitant]
  6. BIOTIN [Concomitant]
  7. FISH OIL (FISH OIL) [Concomitant]
  8. MULTI-VITAMIN [Concomitant]
  9. XANAX [Concomitant]
  10. KEFLEX [Concomitant]
  11. HEPARIN-NA (HEPARIN SODIUM) [Concomitant]
  12. TYLENOL (CAPLET) [Concomitant]

REACTIONS (35)
  - ABDOMINAL PAIN [None]
  - ACTIVATED PARTIAL THROMBOPLASTIN TIME PROLONGED [None]
  - ALANINE AMINOTRANSFERASE INCREASED [None]
  - ALOPECIA [None]
  - ANXIETY [None]
  - ASPARTATE AMINOTRANSFERASE INCREASED [None]
  - BLOOD ALKALINE PHOSPHATASE INCREASED [None]
  - BLOOD CREATININE INCREASED [None]
  - BLOOD UREA INCREASED [None]
  - CELLULITIS [None]
  - CONSTIPATION [None]
  - DEPRESSION [None]
  - FATIGUE [None]
  - FEELING COLD [None]
  - GALLBLADDER DISORDER [None]
  - GASTRITIS EROSIVE [None]
  - GASTROENTERITIS [None]
  - HAEMATOCRIT DECREASED [None]
  - HAEMOGLOBIN DECREASED [None]
  - INFLUENZA LIKE ILLNESS [None]
  - INTERNATIONAL NORMALISED RATIO INCREASED [None]
  - IRRITABLE BOWEL SYNDROME [None]
  - MALIGNANT NEOPLASM PROGRESSION [None]
  - MUSCLE SPASMS [None]
  - NAUSEA [None]
  - OEDEMA PERIPHERAL [None]
  - PAIN [None]
  - PLATELET COUNT DECREASED [None]
  - POST THROMBOTIC SYNDROME [None]
  - PROTHROMBIN TIME PROLONGED [None]
  - PYREXIA [None]
  - RASH [None]
  - RED BLOOD CELL COUNT DECREASED [None]
  - WEIGHT INCREASED [None]
  - WHITE BLOOD CELL COUNT INCREASED [None]
